FAERS Safety Report 7297254-3 (Version None)
Quarter: 2011Q1

REPORT INFORMATION
  Report Type: 
  Country: None (occurrence: None)
  Receive Date: 20110216
  Receipt Date: 20110112
  Transmission Date: 20110831
  Serious: No
  Sender: FDA-Public Use
  Company Number: US-BAYER-2011-004452

PATIENT
  Sex: Female
  Weight: 165 kg

DRUGS (3)
  1. DIOVAN [Concomitant]
  2. LEVOTHYROXINE SODIUM [Concomitant]
  3. ALEVE (CAPLET) [Suspect]
     Indication: ARTHRITIS
     Dosage: DAILY DOSE 4 DF
     Route: 048
     Dates: start: 20110109, end: 20110111

REACTIONS (1)
  - INSOMNIA [None]
